FAERS Safety Report 6370688-7 (Version None)
Quarter: 2009Q3

REPORT INFORMATION
  Report Type: 
  Country: None (occurrence: None)
  Receive Date: 20090923
  Receipt Date: 20070523
  Transmission Date: 20100115
  Serious: Yes (Other)
  Sender: FDA-Public Use
  Company Number: US-ASTRAZENECA-2006UW25431

PATIENT
  Sex: Male
  Weight: 91.2 kg

DRUGS (19)
  1. SEROQUEL [Suspect]
     Indication: SCHIZOPHRENIA
     Route: 048
     Dates: start: 20020101, end: 20050501
  2. SEROQUEL [Suspect]
     Indication: AGITATION
     Route: 048
     Dates: start: 20020101, end: 20050501
  3. SEROQUEL [Suspect]
     Dosage: 20-800 MG
     Route: 048
     Dates: start: 20020626, end: 20050414
  4. SEROQUEL [Suspect]
     Dosage: 20-800 MG
     Route: 048
     Dates: start: 20020626, end: 20050414
  5. HALDOL [Concomitant]
     Dates: start: 20060101
  6. NAVANE [Concomitant]
     Dates: start: 19740101, end: 19750101
  7. RISPERIDONE [Concomitant]
     Dosage: 2-6 MG AT NIGHT
     Route: 048
     Dates: start: 19981015
  8. STELAZINE [Concomitant]
     Dates: start: 19740101
  9. THORAZINE [Concomitant]
     Dates: start: 19700101, end: 19900101
  10. TRILAFON [Concomitant]
  11. ZYPREXA [Concomitant]
     Dosage: STARTED IN LATE 90'S
  12. DOCUSATE [Concomitant]
     Dates: start: 20020626
  13. DIVALPROEX SODIUM [Concomitant]
     Route: 048
     Dates: start: 20001121, end: 20030626
  14. TOPAMAX [Concomitant]
     Dosage: 100-200 MG
     Route: 048
     Dates: start: 20030626
  15. MIRTAZAPINE [Concomitant]
     Route: 048
     Dates: start: 20030829
  16. PROPRANOLOL [Concomitant]
     Indication: AKATHISIA
     Route: 048
     Dates: start: 20040413
  17. TRAZODONE [Concomitant]
     Dosage: 100-200 MG, AT NIGHT
     Route: 048
     Dates: start: 19981028
  18. LISINOPRIL [Concomitant]
     Route: 048
     Dates: start: 20040401
  19. LEVOTHYROXINE SODIUM [Concomitant]
     Route: 048
     Dates: start: 20040401

REACTIONS (2)
  - TARDIVE DYSKINESIA [None]
  - TYPE 2 DIABETES MELLITUS [None]
